FAERS Safety Report 6218761-8 (Version None)
Quarter: 2009Q2

REPORT INFORMATION
  Report Type: 
  Country: None (occurrence: None)
  Receive Date: 20090608
  Receipt Date: 20090527
  Transmission Date: 20091009
  Serious: Yes (Other)
  Sender: FDA-Public Use
  Company Number: US-PFIZER INC-2009219673

PATIENT

DRUGS (2)
  1. LYRICA [Suspect]
     Dosage: UNK
  2. CELEXA [Suspect]
     Dosage: UNK

REACTIONS (1)
  - SEROTONIN SYNDROME [None]
